FAERS Safety Report 8295223-8 (Version None)
Quarter: 2012Q2

REPORT INFORMATION
  Report Type: 
  Country: None (occurrence: None)
  Receive Date: 20120418
  Receipt Date: 20120410
  Transmission Date: 20120825
  Serious: Yes (Other)
  Sender: FDA-Public Use
  Company Number: US-ASTRAZENECA-2012SE23701

PATIENT
  Age: 61 Year
  Sex: Female
  Weight: 59 kg

DRUGS (3)
  1. TOPROL-XL [Suspect]
     Route: 048
  2. TOPROL-XL [Suspect]
     Indication: HYPERTENSION
     Route: 048
     Dates: start: 20090201
  3. VITAMIN D [Concomitant]

REACTIONS (9)
  - BLOOD PRESSURE INCREASED [None]
  - NERVOUSNESS [None]
  - HEART RATE INCREASED [None]
  - TREMOR [None]
  - DIZZINESS [None]
  - DYSGEUSIA [None]
  - HYPOAESTHESIA [None]
  - DYSPNOEA [None]
  - OFF LABEL USE [None]
